FAERS Safety Report 9775230 (Version 1)
Quarter: 2013Q4

REPORT INFORMATION
  Report Type: Spontaneous
  Country: FR (occurrence: FR)
  Receive Date: 20131220
  Receipt Date: 20131220
  Transmission Date: 20140711
  Serious: Yes (Hospitalization)
  Sender: FDA-Public Use
  Company Number: FR-PFIZER INC-2013360235

PATIENT
  Age: 78 Year
  Sex: Male

DRUGS (13)
  1. AMLOR [Suspect]
     Indication: HYPERTENSION
     Dosage: 10 MG, 1X/DAY
     Route: 048
     Dates: end: 20131122
  2. AMLOR [Suspect]
     Dosage: 5 MG, 1X/DAY
  3. AMLOR [Suspect]
     Dosage: 10 MG, 1X/DAY
     Dates: start: 20131125
  4. LASILIX SPECIAL [Suspect]
     Indication: HYPERTENSION
     Dosage: 250 MG, DAILY
     Route: 048
     Dates: end: 20130930
  5. LASILIX SPECIAL [Suspect]
     Dosage: 250 MG, 2X/DAY
     Route: 048
     Dates: start: 20131001, end: 20131120
  6. HYTACAND [Suspect]
     Indication: HYPERTENSION
     Dosage: 1 DF (16/12.5 MG), DAILY
     Route: 048
     Dates: start: 20131001, end: 20131120
  7. CARDENSIEL [Suspect]
     Indication: HYPERTENSION
     Dosage: 2.5 MG, 1X/DAY
     Route: 048
     Dates: end: 20131123
  8. CARDENSIEL [Suspect]
     Dosage: 1 MG, 1X/DAY
  9. TAHOR [Concomitant]
  10. PLAVIX [Concomitant]
  11. SPECIAFOLDINE [Concomitant]
  12. KAYEXALATE [Concomitant]
  13. PRAXILENE [Concomitant]

REACTIONS (2)
  - Renal failure [Recovering/Resolving]
  - Hypotension [Recovering/Resolving]
